FAERS Safety Report 9452306 (Version 4)
Quarter: 2014Q2

REPORT INFORMATION
  Report Type: Report from Study
  Country: BR (occurrence: BR)
  Receive Date: 20130812
  Receipt Date: 20140618
  Transmission Date: 20141212
  Serious: Yes (Hospitalization, Other)
  Sender: FDA-Public Use
  Company Number: BR-ROCHE-1259816

PATIENT
  Sex: Male
  Weight: 54 kg

DRUGS (5)
  1. PULMOZYME [Suspect]
     Indication: CYSTIC FIBROSIS
     Dosage: 3 NEBULIZATIONS PER DAY
     Route: 055
  2. URSACOL [Concomitant]
     Route: 065
  3. SINGULAIR [Concomitant]
     Route: 065
  4. CREON [Concomitant]
     Route: 065
  5. OMEPRAZOLE [Concomitant]
     Route: 048

REACTIONS (6)
  - Dyspnoea [Recovering/Resolving]
  - Fatigue [Recovering/Resolving]
  - Decreased appetite [Recovering/Resolving]
  - Weight decreased [Recovering/Resolving]
  - Depression [Recovering/Resolving]
  - Thrombosis [Recovering/Resolving]
